FAERS Safety Report 19396474 (Version 2)
Quarter: 2021Q4

REPORT INFORMATION
  Report Type: Spontaneous
  Country: US (occurrence: US)
  Receive Date: 20210610
  Receipt Date: 20211206
  Transmission Date: 20220303
  Serious: Yes (Life-Threatening, Hospitalization, Other)
  Sender: FDA-Public Use
  Company Number: US-MLMSERVICE-20210526-2909686-1

PATIENT
  Age: 17 Year
  Sex: Female

DRUGS (1)
  1. IBUPROFEN [Suspect]
     Active Substance: IBUPROFEN
     Indication: Product used for unknown indication
     Dosage: 2000 MILLIGRAM/KILOGRAM TOTAL
     Route: 048

REACTIONS (10)
  - Multiple organ dysfunction syndrome [Recovering/Resolving]
  - Acute kidney injury [Recovered/Resolved]
  - Toxicity to various agents [Unknown]
  - Hypotension [Recovered/Resolved]
  - Depressed level of consciousness [Recovering/Resolving]
  - Electrolyte imbalance [Unknown]
  - Shock [Recovering/Resolving]
  - Metabolic acidosis [Unknown]
  - Seizure like phenomena [Recovering/Resolving]
  - Intentional overdose [Unknown]
